FAERS Safety Report 5247933-4 (Version None)
Quarter: 2007Q1

REPORT INFORMATION
  Report Type: 
  Country: None (occurrence: None)
  Receive Date: 20070226
  Receipt Date: 20070226
  Transmission Date: 20070707
  Serious: Yes (Death, Hospitalization)
  Sender: FDA-Public Use
  Company Number: None

PATIENT
  Sex: Male

DRUGS (2)
  1. GLEEVEC [Suspect]
     Indication: PROSTATE CANCER
     Dosage: 300 MG QD PO
     Route: 048
     Dates: start: 20070130, end: 20070222
  2. SORAFENIB [Suspect]
     Indication: PROSTATE CANCER
     Dosage: 400 MG QD PO
     Route: 048
     Dates: start: 20070130, end: 20070222

REACTIONS (4)
  - DISEASE PROGRESSION [None]
  - PAIN [None]
  - REFUSAL OF TREATMENT BY PATIENT [None]
  - SPINAL COMPRESSION FRACTURE [None]
